FAERS Safety Report 20053495 (Version 2)
Quarter: 2022Q1

REPORT INFORMATION
  Report Type: Report from Study
  Country: KR (occurrence: KR)
  Receive Date: 20211110
  Receipt Date: 20220112
  Transmission Date: 20220423
  Serious: Yes (Hospitalization, Other)
  Sender: FDA-Public Use
  Company Number: KR-TAKEDA-2021TUS069166

PATIENT
  Age: 30 Year
  Sex: Male
  Weight: 78.3 kg

DRUGS (25)
  1. VEDOLIZUMAB [Suspect]
     Active Substance: VEDOLIZUMAB
     Indication: Crohn^s disease
     Dosage: 300 MILLIGRAM
     Route: 042
     Dates: start: 20210707, end: 20211108
  2. BOLGRE [Concomitant]
     Dosage: UNK UNK, BID
     Route: 048
     Dates: start: 20210524, end: 20211108
  3. BOLGRE [Concomitant]
     Dosage: UNK UNK, BID
     Route: 048
     Dates: start: 20211115
  4. PENTASA [Concomitant]
     Active Substance: MESALAMINE
     Dosage: 1 GRAM, BID
     Route: 048
     Dates: start: 20210218, end: 20211108
  5. PENTASA [Concomitant]
     Active Substance: MESALAMINE
     Dosage: 1 GRAM, BID
     Route: 048
     Dates: start: 20211115
  6. AZATHIOPRINE [Concomitant]
     Active Substance: AZATHIOPRINE
     Dosage: 25 MILLIGRAM, QD
     Route: 048
     Dates: start: 20210319, end: 20211108
  7. AZATHIOPRINE [Concomitant]
     Active Substance: AZATHIOPRINE
     Dosage: 25 MILLIGRAM, QD
     Route: 048
     Dates: start: 20211115
  8. PREDNISOLONE [Concomitant]
     Active Substance: PREDNISOLONE
     Dosage: 10 MILLIGRAM, QOD
     Route: 048
     Dates: start: 20210707, end: 20210718
  9. PREDNISOLONE [Concomitant]
     Active Substance: PREDNISOLONE
     Dosage: 10 MILLIGRAM, QD
     Route: 048
     Dates: start: 20210824, end: 20210920
  10. LECLEAN [Concomitant]
     Indication: Bowel preparation
     Dosage: 133 MILLILITER
     Route: 054
     Dates: start: 20211103, end: 20211104
  11. LECLEAN [Concomitant]
     Dosage: 133 MILLILITER
     Route: 054
     Dates: start: 20211107, end: 20211108
  12. AMINO ACIDS\DEXTROSE\ELECTROLYTES NOS\SOYBEAN OIL [Concomitant]
     Active Substance: AMINO ACIDS\DEXTROSE\ELECTROLYTES NOS\SOYBEAN OIL
     Indication: Nutritional supplementation
     Dosage: 1250 MILLILITER, QD
     Route: 042
     Dates: start: 20211103, end: 20211104
  13. AMINO ACIDS\DEXTROSE\ELECTROLYTES NOS\SOYBEAN OIL [Concomitant]
     Active Substance: AMINO ACIDS\DEXTROSE\ELECTROLYTES NOS\SOYBEAN OIL
     Dosage: 1250 MILLILITER, QD
     Route: 042
     Dates: start: 20211107, end: 20211115
  14. Hexamedin [Concomitant]
     Indication: Preoperative care
     Dosage: 100 MILLILITER
     Route: 048
     Dates: start: 20211107, end: 20211108
  15. JETIAM [Concomitant]
     Indication: Prophylaxis
     Dosage: 1000 MILLIGRAM, QD
     Route: 042
     Dates: start: 20211108, end: 20211108
  16. TRAMADOL HCL [Concomitant]
     Active Substance: TRAMADOL HYDROCHLORIDE
     Indication: Postoperative analgesia
     Dosage: 50 MILLIGRAM, BID
     Route: 042
     Dates: start: 20211108, end: 20211108
  17. TRAMADOL HCL [Concomitant]
     Active Substance: TRAMADOL HYDROCHLORIDE
     Dosage: 50 MILLIGRAM, TID
     Route: 042
     Dates: start: 20211109, end: 20211109
  18. TRAMADOL HCL [Concomitant]
     Active Substance: TRAMADOL HYDROCHLORIDE
     Dosage: 50 MILLIGRAM, QD
     Route: 042
     Dates: start: 20211110, end: 20211110
  19. TRAMADOL HCL [Concomitant]
     Active Substance: TRAMADOL HYDROCHLORIDE
     Dosage: 50 MILLIGRAM, BID
     Route: 042
     Dates: start: 20211111, end: 20211111
  20. MEPERIDINE HYDROCHLORIDE [Concomitant]
     Active Substance: MEPERIDINE HYDROCHLORIDE
     Indication: Postoperative analgesia
     Dosage: 25 MILLIGRAM, BID
     Route: 042
     Dates: start: 20211108, end: 20211108
  21. Boryung meiact [Concomitant]
     Indication: Prophylaxis
     Dosage: UNK
     Route: 050
     Dates: start: 20211108, end: 20211112
  22. PANTOPRAZOLE SODIUM [Concomitant]
     Active Substance: PANTOPRAZOLE SODIUM
     Indication: Prophylaxis
     Dosage: 40 MILLIGRAM, QD
     Route: 042
     Dates: start: 20211110, end: 20211115
  23. Ketocin [Concomitant]
     Indication: Postoperative analgesia
     Dosage: 60 MILLIGRAM, QD
     Route: 042
     Dates: start: 20211110, end: 20211110
  24. DONGA ACETAMINOPHEN [Concomitant]
     Indication: Prophylaxis
     Dosage: 20 MILLIGRAM, QD
     Route: 042
     Dates: start: 20211102, end: 20211103
  25. DONGA ACETAMINOPHEN [Concomitant]
     Dosage: 20 MILLIGRAM, QD
     Route: 042
     Dates: start: 20211107, end: 20211109

REACTIONS (1)
  - Intestinal obstruction [Recovered/Resolved]

NARRATIVE: CASE EVENT DATE: 20211102
